FAERS Safety Report 14092895 (Version 1)
Quarter: 2017Q4

REPORT INFORMATION
  Report Type: Spontaneous
  Country: RO (occurrence: RO)
  Receive Date: 20171016
  Receipt Date: 20171016
  Transmission Date: 20180321
  Serious: Yes (Hospitalization)
  Sender: FDA-Public Use
  Company Number: RO-SHENZHEN TECHDOW PHARMACEUTICAL CO. LTD-RO-2017TEC0000058

PATIENT
  Age: 56 Year
  Sex: Female

DRUGS (4)
  1. HEPARIN SODIUM INJECTION USP, PRESERVATIVE FREE [Suspect]
     Active Substance: HEPARIN SODIUM
     Indication: ANTICOAGULANT THERAPY
  2. ENOXAPARIN [Suspect]
     Active Substance: ENOXAPARIN
     Dosage: 40 MG, BID
  3. ENOXAPARIN [Suspect]
     Active Substance: ENOXAPARIN
     Indication: DEEP VEIN THROMBOSIS
     Dosage: 40 MG, QD
  4. HEPARIN SODIUM INJECTION USP, PRESERVATIVE FREE [Suspect]
     Active Substance: HEPARIN SODIUM
     Indication: DEEP VEIN THROMBOSIS
     Dosage: UNK

REACTIONS (3)
  - Retroperitoneal haematoma [Recovered/Resolved]
  - Gastrointestinal necrosis [Recovered/Resolved]
  - Mesenteric arterial occlusion [Recovered/Resolved]
